FAERS Safety Report 6557782-2 (Version None)
Quarter: 2010Q1

REPORT INFORMATION
  Report Type: 
  Country: None (occurrence: None)
  Receive Date: 20100129
  Receipt Date: 20100118
  Transmission Date: 20100710
  Serious: Yes (Other)
  Sender: FDA-Public Use
  Company Number: PHEH2010US00966

PATIENT
  Sex: Male
  Weight: 63.492 kg

DRUGS (2)
  1. EXJADE [Suspect]
     Indication: MYELODYSPLASTIC SYNDROME
     Dosage: 1250 DAILY
     Route: 048
  2. ARICEPT [Concomitant]
     Dosage: UNK

REACTIONS (3)
  - AGITATION [None]
  - HALLUCINATION [None]
  - MENTAL STATUS CHANGES [None]
